FAERS Safety Report 23405098 (Version 1)
Quarter: 2024Q1

REPORT INFORMATION
  Report Type: Spontaneous
  Country: CN (occurrence: CN)
  Receive Date: 20240116
  Receipt Date: 20240116
  Transmission Date: 20240409
  Serious: Yes (Other)
  Sender: FDA-Public Use
  Company Number: CN-PFIZER INC-PV202400002337

PATIENT
  Age: 86 Year
  Sex: Male

DRUGS (11)
  1. PAXLOVID [Interacting]
     Active Substance: NIRMATRELVIR\RITONAVIR
     Indication: COVID-19 treatment
     Dosage: [NIRMATRELVIR 150 MG]/[RITONAVIR 100 MG]; 2X/DAY
     Route: 048
     Dates: start: 20220423, end: 20220502
  2. AMIODARONE [Interacting]
     Active Substance: AMIODARONE
     Indication: Arrhythmia
     Dosage: 200 MG QD
     Route: 048
     Dates: start: 20220420, end: 20220502
  3. RIVAROXABAN [Interacting]
     Active Substance: RIVAROXABAN
     Indication: Thrombosis prophylaxis
     Dosage: 10 MG QD
     Route: 048
     Dates: start: 20220425, end: 20220502
  4. IRBESARTAN [Concomitant]
     Active Substance: IRBESARTAN
     Indication: Hypertension
     Dosage: 75 MG QD
     Route: 048
     Dates: start: 20220416, end: 20220505
  5. ROSUVASTATIN CALCIUM [Concomitant]
     Active Substance: ROSUVASTATIN CALCIUM
     Dosage: 5 MG QN
     Route: 048
     Dates: start: 20220416, end: 20220505
  6. CLOPIDOGREL BISULFATE [Concomitant]
     Active Substance: CLOPIDOGREL BISULFATE
     Indication: Antiplatelet therapy
     Dosage: 75 MG QD
     Route: 048
     Dates: start: 20220416, end: 20220505
  7. CITICOLINE [Concomitant]
     Active Substance: CITICOLINE
     Indication: Neuropathy peripheral
     Dosage: 0.2 G TID
     Route: 048
     Dates: start: 20220416, end: 20220423
  8. CEFTRIAXONE [Concomitant]
     Active Substance: CEFTRIAXONE\CEFTRIAXONE SODIUM
     Indication: Anti-infective therapy
     Dosage: 1G QD
     Route: 041
     Dates: start: 20220416, end: 20220420
  9. CEFOPERAZONE SODIUM\SULBACTAM SODIUM [Concomitant]
     Active Substance: CEFOPERAZONE SODIUM\SULBACTAM SODIUM
     Indication: Anti-infective therapy
     Dosage: 3G Q 12 H
     Route: 041
     Dates: start: 20220420, end: 20220425
  10. DESLANOSIDE [Concomitant]
     Active Substance: DESLANOSIDE
     Indication: Heart rate abnormal
     Dosage: 0.2 MG INTRAVENOUS ST
     Route: 042
     Dates: start: 20220420, end: 20220420
  11. DESLANOSIDE [Concomitant]
     Active Substance: DESLANOSIDE
     Indication: Atrial fibrillation

REACTIONS (6)
  - Drug interaction [Unknown]
  - Liver injury [Recovering/Resolving]
  - Bradycardia [Recovered/Resolved]
  - Prothrombin time prolonged [Recovered/Resolved]
  - Inappropriate schedule of product administration [Unknown]
  - Off label use [Unknown]

NARRATIVE: CASE EVENT DATE: 20220423
